FAERS Safety Report 6736833-6 (Version None)
Quarter: 2010Q2

REPORT INFORMATION
  Report Type: 
  Country: None (occurrence: None)
  Receive Date: 20100521
  Receipt Date: 20100514
  Transmission Date: 20101027
  Serious: Yes (Other)
  Sender: FDA-Public Use
  Company Number: US-JNJCH-2010011941

PATIENT
  Age: 70 Year
  Sex: Female
  Weight: 59.9 kg

DRUGS (3)
  1. NATURAL CITRUS LISTERINE [Suspect]
     Indication: DENTAL DISORDER PROPHYLAXIS
     Dosage: TEXT:^UNDETERMINED AMOUNT^ UP TO TWICE A DAY
     Route: 048
     Dates: start: 20100509, end: 20100511
  2. TOPROL-XL [Concomitant]
     Indication: PROPHYLAXIS
     Dosage: TEXT:1 DAILY
     Route: 065
  3. CENTRUM [Concomitant]
     Indication: VITAMIN SUPPLEMENTATION
     Dosage: TEXT:1 DAILY
     Route: 065

REACTIONS (6)
  - APPLICATION SITE ANAESTHESIA [None]
  - APPLICATION SITE ERYTHEMA [None]
  - APPLICATION SITE PAIN [None]
  - APPLICATION SITE SWELLING [None]
  - APPLICATION SITE WARMTH [None]
  - ORAL HERPES [None]
